FAERS Safety Report 7079728-3 (Version None)
Quarter: 2010Q4

REPORT INFORMATION
  Report Type: 
  Country: None (occurrence: None)
  Receive Date: 20101102
  Receipt Date: 20101027
  Transmission Date: 20110411
  Serious: Yes (Death, Life-Threatening, Hospitalization)
  Sender: FDA-Public Use
  Company Number: PHHY2010JP42705

PATIENT
  Sex: Male
  Weight: 54 kg

DRUGS (10)
  1. EXJADE [Suspect]
     Indication: IRON OVERLOAD
     Dosage: 1000 MG DAILY
     Route: 048
     Dates: start: 20100211, end: 20100223
  2. VANCOMYCIN HYDROCHLORIDE [Concomitant]
     Dosage: 1 GM
     Route: 048
     Dates: start: 20100222, end: 20100306
  3. ADSORBIN [Concomitant]
     Dosage: 2 GM
     Route: 048
     Dates: start: 20100221, end: 20100227
  4. TANNALBIN [Concomitant]
     Indication: PROPHYLAXIS
     Dosage: 2G
     Route: 048
     Dates: start: 20100221, end: 20100227
  5. LAC B [Concomitant]
     Indication: PROPHYLAXIS
     Dosage: 2G
     Route: 048
     Dates: start: 20100221, end: 20100227
  6. PRIMPERAN [Concomitant]
     Dosage: UNK
     Route: 048
     Dates: start: 20100219
  7. MILMAG [Concomitant]
     Indication: PROPHYLAXIS
     Dosage: UNK
     Route: 048
     Dates: start: 20100212
  8. LOXONIN [Concomitant]
     Dosage: UNK
     Dates: start: 20100219
  9. NEO-MINOPHAGEN C [Concomitant]
     Dosage: 40ML
     Route: 042
  10. PAZUCROSS [Concomitant]
     Dosage: 500MG
     Route: 042
     Dates: start: 20100218, end: 20100221

REACTIONS (10)
  - CEREBRAL HAEMORRHAGE [None]
  - CUTANEOUS VASCULITIS [None]
  - DEPRESSED LEVEL OF CONSCIOUSNESS [None]
  - ERYTHEMA [None]
  - HEMIPLEGIA [None]
  - PAIN [None]
  - PYREXIA [None]
  - RASH [None]
  - RESPIRATORY FAILURE [None]
  - SKIN LESION [None]
